FAERS Safety Report 5017061-1 (Version None)
Quarter: 2006Q2

REPORT INFORMATION
  Report Type: 
  Country: None (occurrence: None)
  Receive Date: 20060414
  Receipt Date: 20060209
  Transmission Date: 20061013
  Serious: No
  Sender: FDA-Public Use
  Company Number: 2006SP000723

PATIENT
  Age: 63 Year
  Sex: Female
  Weight: 104.3273 kg

DRUGS (4)
  1. LUNESTA [Suspect]
     Dosage: 2 MG;1X;ORAL
     Route: 048
     Dates: start: 20060205, end: 20060205
  2. TYLENOL (CAPLET) [Concomitant]
  3. ALEVE (CAPLET) [Concomitant]
  4. VESICARE [Concomitant]

REACTIONS (2)
  - DRUG INEFFECTIVE [None]
  - INSOMNIA [None]
